FAERS Safety Report 17472431 (Version 1)
Quarter: 2020Q1

REPORT INFORMATION
  Report Type: Report from Study
  Country: CA (occurrence: CA)
  Receive Date: 20200228
  Receipt Date: 20200228
  Transmission Date: 20200409
  Serious: Yes (Other)
  Sender: FDA-Public Use
  Company Number: CA-EISAI MEDICAL RESEARCH-EC-2017-034222

PATIENT
  Sex: Male

DRUGS (8)
  1. LENVIMA [Suspect]
     Active Substance: LENVATINIB
     Route: 048
     Dates: start: 20191202, end: 20191208
  2. LENVIMA [Suspect]
     Active Substance: LENVATINIB
     Route: 048
     Dates: end: 201911
  3. FOSINOPRIL [Concomitant]
     Active Substance: FOSINOPRIL
  4. LENVIMA [Suspect]
     Active Substance: LENVATINIB
     Indication: THYROID CANCER
     Route: 048
     Dates: start: 20171127, end: 201712
  5. ADVIL [Concomitant]
     Active Substance: IBUPROFEN
  6. VOLTAREN [Concomitant]
     Active Substance: DICLOFENAC SODIUM
  7. ASA [Concomitant]
     Active Substance: ASPIRIN
  8. VITAMIN D [Concomitant]
     Active Substance: VITAMIN D NOS

REACTIONS (17)
  - Blood pressure fluctuation [Recovered/Resolved]
  - Skin disorder [Unknown]
  - Blood thyroid stimulating hormone increased [Unknown]
  - Dysphonia [Unknown]
  - Tooth fracture [Unknown]
  - Pain of skin [Unknown]
  - Feeding disorder [Recovered/Resolved]
  - Abdominal discomfort [Unknown]
  - Blood pressure increased [Recovering/Resolving]
  - Weight decreased [Recovered/Resolved]
  - Cardiac failure congestive [Unknown]
  - Nausea [Not Recovered/Not Resolved]
  - Mouth ulceration [Recovered/Resolved]
  - Taste disorder [Unknown]
  - Decreased appetite [Unknown]
  - Rash [Recovered/Resolved]
  - Dry skin [Unknown]

NARRATIVE: CASE EVENT DATE: 2017
